FAERS Safety Report 15251817 (Version 1)
Quarter: 2018Q3

REPORT INFORMATION
  Report Type: Spontaneous
  Country: US (occurrence: US)
  Receive Date: 20180717
  Receipt Date: 20180717
  Transmission Date: 20181010
  Serious: Yes (Hospitalization)
  Sender: FDA-Public Use
  Company Number: None

PATIENT
  Age: 41 Year
  Sex: Male

DRUGS (3)
  1. VITAMIN + MINERALS [Concomitant]
  2. HUMIRA [Suspect]
     Active Substance: ADALIMUMAB
     Route: 058
     Dates: start: 20170113
  3. PENTASA [Suspect]
     Active Substance: MESALAMINE

REACTIONS (2)
  - Hospitalisation [None]
  - Condition aggravated [None]
